FAERS Safety Report 24761488 (Version 1)
Quarter: 2024Q4

REPORT INFORMATION
  Report Type: Spontaneous
  Country: CH (occurrence: CH)
  Receive Date: 20241220
  Receipt Date: 20241220
  Transmission Date: 20250115
  Serious: Yes (Hospitalization)
  Sender: UCB
  Company Number: None

PATIENT
  Age: 10 Year
  Sex: Female
  Weight: 36.7 kg

DRUGS (6)
  1. KEPPRA [Suspect]
     Active Substance: LEVETIRACETAM
     Indication: Epilepsy
     Dosage: 650 MILLIGRAM, 2X/DAY (BID)
     Route: 048
     Dates: start: 202404, end: 202406
  2. BRIVIACT [Suspect]
     Active Substance: BRIVARACETAM
     Indication: Epilepsy
     Dosage: 35 MILLIGRAM, ONCE DAILY (QD) IN MORNING
     Route: 048
     Dates: start: 20241015, end: 20241017
  3. BRIVIACT [Suspect]
     Active Substance: BRIVARACETAM
     Dosage: 35 MILLIGRAM, 2X/DAY (BID) (MORNING AND EVENING)
     Route: 048
     Dates: start: 20241018, end: 20241020
  4. LAMOTRIGINE [Suspect]
     Active Substance: LAMOTRIGINE
     Indication: Epilepsy
     Dosage: 30 MILLIGRAM, 2X/DAY (BID), TITRATED, PAUSED DURING HOSPITALISATION
     Route: 048
     Dates: start: 202408, end: 202410
  5. MIDAZOLAM [Concomitant]
     Active Substance: MIDAZOLAM
     Indication: Seizure
     Dosage: 10 MILLIGRAM, AS NEEDED (PRN) (10 MG/2 ML SOLUTION) 1ST LINE RESCUE FOR SEIZURES GREATER THAN 3 MINU
  6. IBUPROFEN [Concomitant]
     Active Substance: IBUPROFEN
     Indication: Product used for unknown indication
     Dosage: 360 MG (18 ML), EVERY 8 HOURS OR AS NEEDED (PRN) (100 MG/5 ML SUSPENSION) (10 MG/KG)

REACTIONS (6)
  - Confusional state [Recovered/Resolved]
  - Memory impairment [Recovered/Resolved]
  - Excessive eye blinking [Recovered/Resolved]
  - Hallucination, visual [Recovered/Resolved]
  - Inappropriate schedule of product administration [Unknown]
  - Agitation [Recovered/Resolved]

NARRATIVE: CASE EVENT DATE: 20240401
